FAERS Safety Report 9760986 (Version 1)
Quarter: 2013Q4

REPORT INFORMATION
  Report Type: Spontaneous
  Country: US (occurrence: US)
  Receive Date: 20131216
  Receipt Date: 20131216
  Transmission Date: 20140711
  Serious: Yes (Other)
  Sender: FDA-Public Use
  Company Number: 2013SP003588

PATIENT
  Age: 20 Year
  Sex: Male

DRUGS (7)
  1. LATUDA [Suspect]
     Indication: SCHIZOPHRENIA
     Route: 048
     Dates: start: 20131125, end: 20131202
  2. ZYPREXA [Concomitant]
     Route: 048
  3. ZYBAN [Concomitant]
     Route: 048
  4. PAXIL [Concomitant]
  5. ADDERALL [Concomitant]
     Route: 048
  6. KLONOPIN [Concomitant]
     Indication: AGITATION
     Route: 048
  7. CLONIDINE [Concomitant]
     Route: 048

REACTIONS (6)
  - Homicidal ideation [Recovered/Resolved]
  - Mood swings [Unknown]
  - Impatience [Unknown]
  - Poor personal hygiene [Unknown]
  - Insomnia [Unknown]
  - Agitation [Not Recovered/Not Resolved]
